FAERS Safety Report 18760885 (Version 4)
Quarter: 2022Q2

REPORT INFORMATION
  Report Type: Spontaneous
  Country: US (occurrence: US)
  Receive Date: 20210119
  Receipt Date: 20220429
  Transmission Date: 20220721
  Serious: No
  Sender: FDA-Public Use
  Company Number: US-PFIZER INC-2021030265

PATIENT
  Age: 57 Year

DRUGS (1)
  1. PREMARIN [Suspect]
     Active Substance: ESTROGENS, CONJUGATED
     Dosage: UNK, DAILY (1/4 GRAM TO PERIURETHRAL AREA DAILY)

REACTIONS (3)
  - Off label use [Unknown]
  - Off label use [Unknown]
  - Fall [Unknown]
